FAERS Safety Report 8288680-4 (Version None)
Quarter: 2012Q2

REPORT INFORMATION
  Report Type: 
  Country: None (occurrence: None)
  Receive Date: 20120417
  Receipt Date: 20120405
  Transmission Date: 20120825
  Serious: Yes (Life-Threatening, Hospitalization)
  Sender: FDA-Public Use
  Company Number: GB-AMGEN-GBRSP2012022596

PATIENT
  Age: 37 Year
  Sex: Male
  Weight: 75 kg

DRUGS (5)
  1. ENBREL [Suspect]
     Indication: ANKYLOSING SPONDYLITIS
     Dosage: 50MG,UNK
     Route: 058
     Dates: start: 20110201, end: 20110801
  2. ACETAMINOPHEN [Concomitant]
     Indication: PAIN
     Dosage: UNK
  3. INDOMETHACIN [Concomitant]
     Indication: PAIN
     Dosage: UNK
  4. TRAMADOL HCL [Concomitant]
     Indication: PAIN
     Dosage: UNK
  5. DICLOFENAC SODIUM [Concomitant]
     Dosage: UNK

REACTIONS (3)
  - HEPATITIS [None]
  - HEPATIC ENZYME ABNORMAL [None]
  - JAUNDICE [None]
